FAERS Safety Report 15368275 (Version 2)
Quarter: 2018Q3

REPORT INFORMATION
  Report Type: Report from Study
  Country: US (occurrence: US)
  Receive Date: 20180910
  Receipt Date: 20180913
  Transmission Date: 20181010
  Serious: Yes (Hospitalization)
  Sender: FDA-Public Use
  Company Number: US-ACTELION-A-US2018-178595

PATIENT
  Age: 63 Year
  Sex: Female
  Weight: 69.39 kg

DRUGS (1)
  1. VELETRI [Suspect]
     Active Substance: EPOPROSTENOL
     Indication: PULMONARY ARTERIAL HYPERTENSION
     Dosage: 14.06 NG/KG, PER MIN
     Route: 042

REACTIONS (4)
  - Headache [Unknown]
  - Pulmonary arterial hypertension [Unknown]
  - Clostridium difficile infection [Unknown]
  - Pain in jaw [Unknown]
